FAERS Safety Report 23647604 (Version 1)
Quarter: 2024Q1

REPORT INFORMATION
  Report Type: Spontaneous
  Country: DE (occurrence: DE)
  Receive Date: 20240319
  Receipt Date: 20240319
  Transmission Date: 20240410
  Serious: Yes (Other)
  Sender: FDA-Public Use
  Company Number: DE-MYLANLABS-2024M1024660

PATIENT
  Age: 21 Month
  Sex: Male

DRUGS (4)
  1. LEVETIRACETAM [Suspect]
     Active Substance: LEVETIRACETAM
     Indication: Tonic convulsion
     Dosage: 40 MILLIGRAM/KILOGRAM, QD
     Route: 065
  2. CLOBAZAM [Suspect]
     Active Substance: CLOBAZAM
     Indication: Tonic convulsion
     Dosage: 1 MILLIGRAM/KILOGRAM, QD
     Route: 065
  3. ASPARAGINE [Concomitant]
     Active Substance: ASPARAGINE
     Indication: Inborn error of amino acid metabolism
     Dosage: 50 MILLIGRAM/KILOGRAM, QD
     Route: 048
  4. ASPARAGINE [Concomitant]
     Active Substance: ASPARAGINE
     Dosage: 100 MILLIGRAM/KILOGRAM, QD
     Route: 048

REACTIONS (1)
  - Drug ineffective [Unknown]
